FAERS Safety Report 8863152 (Version 2)
Quarter: 2013Q2

REPORT INFORMATION
  Report Type: Report from Study
  Country: US (occurrence: US)
  Receive Date: 20121026
  Receipt Date: 20130423
  Transmission Date: 20140414
  Serious: Yes (Hospitalization)
  Sender: FDA-Public Use
  Company Number: US-ROCHE-1147516

PATIENT
  Sex: Female

DRUGS (17)
  1. PERTUZUMAB [Suspect]
     Indication: BREAST CANCER
     Dosage: LAST DOSE PRIOR TO SAE:04/OCT/2012
     Route: 065
     Dates: start: 20120510
  2. PERTUZUMAB [Suspect]
     Dosage: CYCLE 9 DAY 1
     Route: 065
     Dates: start: 20121025
  3. PERTUZUMAB [Suspect]
     Dosage: CYCLE 10 DAY 1
     Route: 065
     Dates: start: 20121115
  4. TRASTUZUMAB [Suspect]
     Indication: BREAST CANCER
     Dosage: LAST DOSE PRIOR TO SAE:04/OCT/2012
     Route: 065
     Dates: start: 20120510
  5. TRASTUZUMAB [Suspect]
     Dosage: CYCLE 10 DAY 1
     Route: 065
     Dates: start: 20121015
  6. TRASTUZUMAB [Suspect]
     Dosage: CYCLE 10 DAY 1
     Route: 065
     Dates: start: 20121115
  7. PACLITAXEL [Suspect]
     Indication: BREAST CANCER
     Dosage: LAST DOSE PRIOR TO SAE:27/SEP/2012
     Route: 065
     Dates: start: 20120510
  8. ADVAIR [Concomitant]
     Route: 065
     Dates: start: 20120507
  9. ASPIRIN [Concomitant]
     Route: 065
     Dates: start: 20120621
  10. BISACODYL [Concomitant]
     Route: 065
     Dates: start: 20120507, end: 20120531
  11. ENOXAPARIN [Concomitant]
     Route: 065
     Dates: start: 20120507, end: 20120621
  12. LEVOTHYROXINE [Concomitant]
     Route: 065
     Dates: start: 20120507
  13. LOSARTAN POTASSIUM [Concomitant]
     Route: 065
     Dates: start: 20120507, end: 20120531
  14. METFORMIN [Concomitant]
     Route: 065
     Dates: start: 20120507, end: 20120821
  15. OXYCODONE [Concomitant]
     Route: 065
     Dates: start: 20120507
  16. RANITIDINE [Concomitant]
     Route: 065
     Dates: start: 20120507
  17. SIMVASTATIN [Concomitant]
     Route: 065
     Dates: start: 20120507

REACTIONS (2)
  - Oedema peripheral [Unknown]
  - Skin infection [Unknown]
